FAERS Safety Report 6025040-0 (Version None)
Quarter: 2008Q4

REPORT INFORMATION
  Report Type: 
  Country: None (occurrence: None)
  Receive Date: 20081231
  Receipt Date: 20081224
  Transmission Date: 20090506
  Serious: Yes (Life-Threatening, Hospitalization, Disabling)
  Sender: FDA-Public Use
  Company Number: US-GENENTECH-270477

PATIENT
  Sex: Female

DRUGS (16)
  1. AVASTIN [Suspect]
     Indication: BREAST CANCER METASTATIC
     Dosage: 10 MG/KG, UNK
     Route: 042
     Dates: start: 20070912, end: 20080806
  2. GEMCITABINE [Suspect]
     Indication: BREAST CANCER METASTATIC
     Dosage: 1500 MG/M2, UNK
     Route: 042
     Dates: start: 20070912, end: 20080806
  3. PACLITAXEL [Suspect]
     Indication: BREAST CANCER METASTATIC
     Dosage: 90 MG/M2, UNK
     Route: 042
     Dates: start: 20070912, end: 20080813
  4. GABAPENTIN [Concomitant]
     Indication: DRUG USE FOR UNKNOWN INDICATION
     Dosage: UNK
     Dates: start: 20070829
  5. FLEXERIL [Concomitant]
     Indication: DRUG USE FOR UNKNOWN INDICATION
     Dosage: UNK
  6. OXYCONTIN [Concomitant]
     Indication: DRUG USE FOR UNKNOWN INDICATION
     Dosage: UNK
     Dates: start: 20070815
  7. DILAUDID [Concomitant]
     Dosage: UNK
     Dates: start: 20070628
  8. KYTRIL [Concomitant]
     Indication: DRUG USE FOR UNKNOWN INDICATION
     Dosage: UNK
     Dates: start: 20070829
  9. PHENERGAN HCL [Concomitant]
     Indication: DRUG USE FOR UNKNOWN INDICATION
     Dosage: UNK
     Dates: start: 20080102
  10. METOPROLOL [Concomitant]
     Indication: DRUG USE FOR UNKNOWN INDICATION
     Dosage: UNK
     Dates: start: 20080716
  11. MICARDIS [Concomitant]
     Indication: DRUG USE FOR UNKNOWN INDICATION
     Dosage: UNK
  12. LASIX [Concomitant]
     Indication: DRUG USE FOR UNKNOWN INDICATION
     Dosage: UNK
     Dates: start: 20080514
  13. ZOMETA [Concomitant]
     Indication: DRUG USE FOR UNKNOWN INDICATION
     Dosage: UNK
     Dates: start: 20070724
  14. REGLAN [Concomitant]
     Indication: DRUG USE FOR UNKNOWN INDICATION
  15. AMBIEN [Concomitant]
     Indication: DRUG USE FOR UNKNOWN INDICATION
  16. WHOLE BLOOD [Concomitant]
     Indication: DRUG USE FOR UNKNOWN INDICATION

REACTIONS (3)
  - CARDIOMYOPATHY [None]
  - MALIGNANT HYPERTENSION [None]
  - PULMONARY HYPERTENSION [None]
